FAERS Safety Report 6521222-X (Version None)
Quarter: 2009Q4

REPORT INFORMATION
  Report Type: 
  Country: None (occurrence: None)
  Receive Date: 20091230
  Receipt Date: 20091217
  Transmission Date: 20100525
  Serious: Yes (Death)
  Sender: FDA-Public Use
  Company Number: DE-BIOGENIDEC-2009BI025702

PATIENT
  Age: 39 Year
  Sex: Female

DRUGS (3)
  1. TYSABRI [Suspect]
     Indication: MULTIPLE SCLEROSIS
     Route: 042
     Dates: start: 20080109, end: 20090723
  2. BACLOFEN [Concomitant]
     Indication: MUSCLE SPASTICITY
  3. SPASMEX [Concomitant]
     Indication: BLADDER DYSFUNCTION

REACTIONS (1)
  - DEEP VEIN THROMBOSIS [None]
